FAERS Safety Report 26157787 (Version 1)
Quarter: 2025Q4

REPORT INFORMATION
  Report Type: Spontaneous
  Country: US (occurrence: None)
  Receive Date: 20251213
  Receipt Date: 20251213
  Transmission Date: 20260118
  Serious: Yes (Hospitalization)
  Sender: FDA-CTU
  Company Number: None

PATIENT
  Age: 79 Year
  Sex: Female

DRUGS (1)
  1. TREMFYA [Suspect]
     Active Substance: GUSELKUMAB
     Indication: Colitis
     Dosage: 200MG EVERY 4 WEEKS SUBCUTANEOUS
     Route: 058

REACTIONS (2)
  - Rib fracture [None]
  - Pneumothorax [None]
